FAERS Safety Report 11450682 (Version 1)
Quarter: 2015Q3

REPORT INFORMATION
  Report Type: Spontaneous
  Country: US (occurrence: US)
  Receive Date: 20150903
  Receipt Date: 20150903
  Transmission Date: 20151125
  Serious: Yes (Other)
  Sender: FDA-Public Use
  Company Number: US-ROCHE-1001319

PATIENT
  Sex: Female

DRUGS (4)
  1. COPEGUS [Suspect]
     Active Substance: RIBAVIRIN
     Indication: CHRONIC HEPATITIS C
     Route: 048
  2. PEGASYS [Suspect]
     Active Substance: PEGINTERFERON ALFA-2A
     Indication: CHRONIC HEPATITIS C
     Route: 058
     Dates: start: 20111013
  3. COPEGUS [Suspect]
     Active Substance: RIBAVIRIN
     Dosage: DOSE DECREASED
     Route: 048
     Dates: start: 20111012
  4. MORPHINE [Concomitant]
     Active Substance: MORPHINE
     Indication: PAIN

REACTIONS (12)
  - Paraesthesia [Unknown]
  - Nausea [Unknown]
  - Unevaluable event [Unknown]
  - White blood cell count decreased [Unknown]
  - Vomiting [Unknown]
  - Migraine [Unknown]
  - Decreased appetite [Unknown]
  - Myalgia [Unknown]
  - Abdominal pain [Unknown]
  - Photophobia [Unknown]
  - Rheumatoid arthritis [Unknown]
  - Oral candidiasis [Unknown]
